FAERS Safety Report 9272121 (Version 2)
Quarter: 2013Q2

REPORT INFORMATION
  Report Type: Report from Study
  Country: JP (occurrence: JP)
  Receive Date: 20130506
  Receipt Date: 20130621
  Transmission Date: 20140414
  Serious: Yes (Other)
  Sender: FDA-Public Use
  Company Number: JP-ACTELION-A-CH2013-82492

PATIENT
  Age: 71 Year
  Sex: Male
  Weight: 50.8 kg

DRUGS (9)
  1. TRACLEER [Suspect]
     Indication: PULMONARY HYPERTENSION
     Dosage: 62.5 MG, BID
     Route: 048
     Dates: start: 20130222, end: 20130322
  2. TRACLEER [Suspect]
     Dosage: 62.5 MG, TID
     Route: 048
     Dates: start: 20130323, end: 20130326
  3. BERAPROST SODIUM [Concomitant]
  4. TADALAFIL [Concomitant]
  5. WARFARIN POTASSIUM [Concomitant]
  6. FUROSEMIDE [Concomitant]
  7. SPIRONOLACTONE [Concomitant]
  8. ESOMEPRAZOLE MAGNESIUM [Concomitant]
  9. OXYGEN [Concomitant]

REACTIONS (1)
  - Pancytopenia [Unknown]
